FAERS Safety Report 9791656 (Version 3)
Quarter: 2015Q3

REPORT INFORMATION
  Report Type: Report from Study
  Country: MX (occurrence: MX)
  Receive Date: 20140102
  Receipt Date: 20150708
  Transmission Date: 20151125
  Serious: Yes (Disabling, Other)
  Sender: FDA-Public Use
  Company Number: MX-ORION CORPORATION ORION PHARMA-ENTC2013-0490

PATIENT
  Age: 66 Year
  Sex: Male

DRUGS (9)
  1. VENLAFAXINE [Concomitant]
     Active Substance: VENLAFAXINE HYDROCHLORIDE
     Indication: DEPRESSION
     Route: 065
     Dates: start: 2011
  2. STALEVO [Suspect]
     Active Substance: CARBIDOPA\ENTACAPONE\LEVODOPA
     Indication: PARKINSON^S DISEASE
     Dosage: STRENGTH: 200/50/200 MG
     Route: 048
     Dates: start: 20111214
  3. SIFROL [Concomitant]
     Active Substance: PRAMIPEXOLE
     Route: 065
  4. MICARDIS [Concomitant]
     Active Substance: TELMISARTAN
     Indication: HYPERTENSION
     Route: 065
     Dates: start: 2008
  5. ASPIRINA PROTECT [Concomitant]
     Active Substance: ASPIRIN
     Indication: CEREBROVASCULAR ACCIDENT PROPHYLAXIS
     Route: 065
     Dates: start: 2008
  6. LEVODOPA [Concomitant]
     Active Substance: LEVODOPA
     Route: 065
  7. STALEVO [Suspect]
     Active Substance: CARBIDOPA\ENTACAPONE\LEVODOPA
     Dosage: 125/31.25/200 MG
     Route: 048
  8. STALEVO [Suspect]
     Active Substance: CARBIDOPA\ENTACAPONE\LEVODOPA
     Dosage: STRENGTH: 200/50/200 MG
     Route: 048
  9. CARBIDOPA. [Concomitant]
     Active Substance: CARBIDOPA
     Route: 065

REACTIONS (7)
  - Dysphagia [Not Recovered/Not Resolved]
  - Speech disorder [Not Recovered/Not Resolved]
  - Intentional product misuse [Unknown]
  - Panic disorder [Not Recovered/Not Resolved]
  - Joint stiffness [Not Recovered/Not Resolved]
  - Depressed mood [Not Recovered/Not Resolved]
  - Nuchal rigidity [Not Recovered/Not Resolved]

NARRATIVE: CASE EVENT DATE: 20130911
